FAERS Safety Report 9331943 (Version 1)
Quarter: 2013Q2

REPORT INFORMATION
  Report Type: Spontaneous
  Country: CA (occurrence: CA)
  Receive Date: 20130605
  Receipt Date: 20130605
  Transmission Date: 20140414
  Serious: No
  Sender: FDA-Public Use
  Company Number: CA-009507513-1305CAN016002

PATIENT
  Age: 15 Year
  Sex: Female

DRUGS (1)
  1. NASONEX [Suspect]
     Indication: RHINITIS ALLERGIC
     Dosage: UNK
     Dates: start: 2012

REACTIONS (2)
  - Ear disorder [Recovered/Resolved]
  - Incorrect route of drug administration [Unknown]
